FAERS Safety Report 7900106-6 (Version None)
Quarter: 2011Q4

REPORT INFORMATION
  Report Type: 
  Country: None (occurrence: None)
  Receive Date: 20111108
  Receipt Date: 20111103
  Transmission Date: 20120403
  Serious: No
  Sender: FDA-Public Use
  Company Number: US-BIOGENIDEC-2011BI042031

PATIENT
  Age: 72 Year
  Sex: Female

DRUGS (4)
  1. AVONEX [Suspect]
     Route: 030
     Dates: start: 19960901, end: 20021101
  2. BACLOFEN [Concomitant]
     Indication: MUSCLE SPASMS
  3. IRON [Concomitant]
     Indication: IRON DEFICIENCY
     Dates: start: 20090101
  4. AVONEX [Suspect]
     Indication: MULTIPLE SCLEROSIS
     Route: 030
     Dates: start: 20091101

REACTIONS (3)
  - ASTHENIA [None]
  - FATIGUE [None]
  - COORDINATION ABNORMAL [None]
